FAERS Safety Report 9670853 (Version 1)
Quarter: 2013Q4

REPORT INFORMATION
  Report Type: Report from Study
  Country: KR (occurrence: KR)
  Receive Date: 20131106
  Receipt Date: 20131106
  Transmission Date: 20140711
  Serious: No
  Sender: FDA-Public Use
  Company Number: PHHY2013KR124396

PATIENT
  Age: 76 Year
  Sex: Male

DRUGS (8)
  1. AMN107 [Suspect]
     Indication: CHRONIC MYELOID LEUKAEMIA
     Dosage: 600 MG, UNK
     Route: 048
     Dates: start: 20121101
  2. STILLEN [Concomitant]
     Indication: ABDOMINAL DISCOMFORT
     Dosage: 180 MG, UNK
     Route: 048
     Dates: start: 20120604
  3. MUCORAN [Concomitant]
     Indication: ABDOMINAL DISCOMFORT
     Dosage: 300 MG, UNK
     Route: 048
     Dates: start: 20070131
  4. OPALMON [Concomitant]
     Indication: SPINAL COLUMN STENOSIS
     Dosage: 15 UG, UNK
     Route: 048
     Dates: start: 20051228
  5. ULTRACET [Concomitant]
     Indication: SPINAL COLUMN STENOSIS
     Dosage: 3 DF, UNK
     Route: 048
     Dates: start: 20060918
  6. CARDURA [Concomitant]
     Indication: BENIGN PROSTATIC HYPERPLASIA
     Dosage: 4 MG, UNK
     Route: 048
     Dates: start: 20040817
  7. VESICARE [Concomitant]
     Indication: BENIGN PROSTATIC HYPERPLASIA
     Dosage: 5 MG, UNK
     Route: 048
     Dates: start: 20110307
  8. AVODART [Concomitant]
     Indication: BENIGN PROSTATIC HYPERPLASIA
     Dosage: 0.5 MG, UNK
     Route: 048
     Dates: start: 20120625

REACTIONS (1)
  - Eye pain [Recovered/Resolved]
